FAERS Safety Report 9771383 (Version 1)
Quarter: 2013Q4

REPORT INFORMATION
  Report Type: Report from Study
  Country: US (occurrence: US)
  Receive Date: 20131218
  Receipt Date: 20131218
  Transmission Date: 20140711
  Serious: Yes (Death)
  Sender: FDA-Public Use
  Company Number: US-ROCHE-1322419

PATIENT
  Age: 58 Year
  Sex: Male

DRUGS (1)
  1. XELODA [Suspect]
     Indication: RECTOSIGMOID CANCER
     Dosage: 3 TWICE A DAY, 14 DAYS ON 7 DAYS OFF
     Route: 065

REACTIONS (1)
  - Death [Fatal]
